FAERS Safety Report 12243541 (Version 1)
Quarter: 2016Q2

REPORT INFORMATION
  Report Type: Spontaneous
  Country: JP (occurrence: JP)
  Receive Date: 20160406
  Receipt Date: 20160406
  Transmission Date: 20160815
  Serious: Yes (Other)
  Sender: FDA-Public Use
  Company Number: JP-SA-2016SA067772

PATIENT

DRUGS (2)
  1. LASIX [Suspect]
     Active Substance: FUROSEMIDE
     Route: 048
  2. ALDACTONE-A [Suspect]
     Active Substance: SPIRONOLACTONE
     Route: 048

REACTIONS (2)
  - Blood sodium decreased [Not Recovered/Not Resolved]
  - Blood potassium increased [Unknown]
